FAERS Safety Report 10401136 (Version 1)
Quarter: 2014Q3

REPORT INFORMATION
  Report Type: Other
  Country: JP (occurrence: JP)
  Receive Date: 20140822
  Receipt Date: 20140822
  Transmission Date: 20150326
  Serious: Yes (Other)
  Sender: FDA-Public Use
  Company Number: JP-LUPIN PHARMACEUTICALS INC.-2014-01298

PATIENT
  Age: 39 Year
  Sex: Female
  Weight: 57.5 kg

DRUGS (6)
  1. PREGABALIN. [Suspect]
     Active Substance: PREGABALIN
     Route: 065
  2. PREGABALIN. [Suspect]
     Active Substance: PREGABALIN
     Route: 065
  3. PREGABALIN. [Suspect]
     Active Substance: PREGABALIN
     Route: 065
  4. PREGABALIN. [Suspect]
     Active Substance: PREGABALIN
     Indication: NEURALGIA
     Route: 065
  5. DULOXETINE [Suspect]
     Active Substance: DULOXETINE
     Indication: NEURALGIA
     Dosage: 20MG
     Route: 065
  6. INSULIN [Concomitant]
     Active Substance: INSULIN NOS

REACTIONS (1)
  - Drug effect decreased [Unknown]
